FAERS Safety Report 8802002 (Version 2)
Quarter: 2014Q2

REPORT INFORMATION
  Report Type: Spontaneous
  Country: US (occurrence: US)
  Receive Date: 20120921
  Receipt Date: 20131017
  Transmission Date: 20141212
  Serious: Yes (Hospitalization, Other)
  Sender: FDA-Public Use
  Company Number: US-PFIZER INC-2012230286

PATIENT
  Age: 60 Year
  Sex: Female
  Weight: 70 kg

DRUGS (6)
  1. PREMPRO [Suspect]
     Indication: HOT FLUSH
     Dosage: UNK ,DAILY
     Route: 048
     Dates: start: 2007
  2. PREMPRO [Suspect]
     Indication: NIGHT SWEATS
  3. MORPHINE [Concomitant]
     Indication: INTERVERTEBRAL DISC PROTRUSION
     Dosage: 10 MG, 2X/DAY
  4. MORPHINE [Concomitant]
     Indication: NERVE INJURY
  5. HYDROCODONE [Concomitant]
     Indication: INTERVERTEBRAL DISC PROTRUSION
     Dosage: 40 MG, DAILY
  6. HYDROCODONE [Concomitant]
     Indication: NERVE INJURY

REACTIONS (7)
  - Fall [Unknown]
  - Joint injury [Unknown]
  - Cardiovascular disorder [Unknown]
  - Pain [Unknown]
  - Gait disturbance [Recovering/Resolving]
  - Embolism [Unknown]
  - Insomnia [Unknown]
